FAERS Safety Report 9480876 (Version 1)
Quarter: 2013Q3

REPORT INFORMATION
  Report Type: Spontaneous
  Country: US (occurrence: US)
  Receive Date: 20130828
  Receipt Date: 20130828
  Transmission Date: 20140515
  Serious: Yes (Death, Hospitalization)
  Sender: FDA-Public Use
  Company Number: US-AMGEN-KDL134106

PATIENT
  Age: 59 Year
  Sex: Male

DRUGS (3)
  1. ENBREL [Suspect]
     Indication: RHEUMATOID ARTHRITIS
     Dosage: 25 MG, 2 TIMES/WK
     Route: 065
     Dates: start: 2000
  2. METHOTREXATE [Concomitant]
     Dosage: UNK UNK, UNK
     Dates: start: 2000
  3. PREDNISONE [Concomitant]
     Dosage: UNK UNK, UNK
     Dates: start: 2000

REACTIONS (4)
  - Multi-organ disorder [Fatal]
  - Bacteraemia [Unknown]
  - Anaemia [Unknown]
  - Intestinal polyp [Unknown]
